FAERS Safety Report 4789041-2 (Version None)
Quarter: 2005Q4

REPORT INFORMATION
  Report Type: 
  Country: None (occurrence: None)
  Receive Date: 20051004
  Receipt Date: 20050919
  Transmission Date: 20060501
  Serious: Yes (Death)
  Sender: FDA-Public Use
  Company Number: DSA_70755_2005

PATIENT
  Age: 53 Year

DRUGS (3)
  1. OXYCODONE HCL [Suspect]
     Dosage: DF UNK PO
     Route: 048
  2. RISPERIDONE [Suspect]
     Dosage: DR UNK PO
     Route: 048
  3. MIRTAZAPINE [Suspect]
     Dosage: DF UNK PO
     Route: 048

REACTIONS (1)
  - MULTIPLE DRUG OVERDOSE [None]
